FAERS Safety Report 9535828 (Version 1)
Quarter: 2013Q3

REPORT INFORMATION
  Report Type: Spontaneous
  Country: US (occurrence: None)
  Receive Date: 20130917
  Receipt Date: 20130917
  Transmission Date: 20140515
  Serious: Yes (Life-Threatening, Other)
  Sender: FDA-Public Use
  Company Number: None

PATIENT
  Age: 76 Year
  Sex: Female

DRUGS (2)
  1. LISINOPRIL [Suspect]
     Indication: HYPERTENSION
     Dosage: ONE PILL
     Route: 048
     Dates: start: 20121126, end: 20130617
  2. HCTZ [Suspect]
     Dosage: ONE PILL
     Route: 048
     Dates: start: 20130723

REACTIONS (5)
  - Myocardial ischaemia [None]
  - Injury [None]
  - Blood pressure decreased [None]
  - Angina pectoris [None]
  - Condition aggravated [None]
